FAERS Safety Report 10844856 (Version 1)
Quarter: 2015Q1

REPORT INFORMATION
  Report Type: Spontaneous
  Country: IT (occurrence: FR)
  Receive Date: 20150220
  Receipt Date: 20150220
  Transmission Date: 20150721
  Serious: Yes (Other)
  Sender: FDA-Public Use
  Company Number: FR-FRI-1000074663

PATIENT
  Age: 44 Year
  Sex: Female

DRUGS (2)
  1. FOSFOMYCIN [Suspect]
     Active Substance: FOSFOMYCIN
     Indication: URINARY TRACT INFECTION
     Dosage: 3 G, SINGLE
     Route: 048
     Dates: start: 20120514, end: 20120514
  2. FOSFOMYCIN [Suspect]
     Active Substance: FOSFOMYCIN
     Dosage: 3 G, SINGLE
     Route: 048
     Dates: start: 201408, end: 201408

REACTIONS (2)
  - Tendonitis [Recovered/Resolved]
  - Joint effusion [None]

NARRATIVE: CASE EVENT DATE: 201405
